FAERS Safety Report 7513115-6 (Version None)
Quarter: 2011Q2

REPORT INFORMATION
  Report Type: 
  Country: None (occurrence: None)
  Receive Date: 20110531
  Receipt Date: 20110523
  Transmission Date: 20111010
  Serious: Yes (Other)
  Sender: FDA-Public Use
  Company Number: FR-PFIZER INC-2011109813

PATIENT
  Age: 27 Year
  Sex: Male

DRUGS (4)
  1. CLONAZEPAM [Suspect]
     Route: 048
  2. LYRICA [Suspect]
     Route: 048
  3. CYMBALTA [Suspect]
     Dosage: UNK
     Route: 048
  4. DUPHALAC [Concomitant]
     Route: 048

REACTIONS (3)
  - ANTEROGRADE AMNESIA [None]
  - DEPRESSION [None]
  - SUICIDE ATTEMPT [None]
